FAERS Safety Report 16173858 (Version 4)
Quarter: 2021Q3

REPORT INFORMATION
  Report Type: Spontaneous
  Country: JP (occurrence: JP)
  Receive Date: 20190409
  Receipt Date: 20210908
  Transmission Date: 20211014
  Serious: Yes (Death)
  Sender: FDA-Public Use
  Company Number: JP-GLAXOSMITHKLINE-JP2019JPN054621

PATIENT
  Age: 68 Year
  Sex: Male

DRUGS (1)
  1. RELVAR ELLIPTA [Suspect]
     Active Substance: FLUTICASONE FUROATE\VILANTEROL TRIFENATATE
     Indication: ASTHMA
     Dosage: 100 ?G, QD
     Route: 055
     Dates: end: 20190329

REACTIONS (2)
  - Wrong technique in product usage process [Unknown]
  - Physical deconditioning [Fatal]

NARRATIVE: CASE EVENT DATE: 20190327
